FAERS Safety Report 12617691 (Version 1)
Quarter: 2016Q3

REPORT INFORMATION
  Report Type: Spontaneous
  Country: US (occurrence: US)
  Receive Date: 20160803
  Receipt Date: 20160803
  Transmission Date: 20161109
  Serious: No
  Sender: FDA-Public Use
  Company Number: US-PFIZER INC-2016340689

PATIENT
  Sex: Female

DRUGS (2)
  1. CELECOXIB. [Suspect]
     Active Substance: CELECOXIB
     Dosage: UNK
  2. CELECOXIB. [Suspect]
     Active Substance: CELECOXIB
     Dosage: UNK

REACTIONS (3)
  - Condition aggravated [Unknown]
  - Neck pain [Unknown]
  - Arthralgia [Unknown]
